FAERS Safety Report 5009552-4 (Version None)
Quarter: 2006Q2

REPORT INFORMATION
  Report Type: 
  Country: None (occurrence: None)
  Receive Date: 20060522
  Receipt Date: 20060509
  Transmission Date: 20061013
  Serious: Yes (Life-Threatening)
  Sender: FDA-Public Use
  Company Number: MC200600308

PATIENT
  Age: 54 Year

DRUGS (8)
  1. ANGIOMAX [Suspect]
     Indication: CORONARY ARTERIAL STENT INSERTION
     Dosage: 80 MG, BOLUS, IV BOLUS; 190 MG, HR, INTRAVENOUS
     Dates: start: 20060509, end: 20060509
  2. ANGIOMAX [Suspect]
     Indication: CORONARY ARTERIAL STENT INSERTION
     Dosage: 80 MG, BOLUS, IV BOLUS; 190 MG, HR, INTRAVENOUS
     Dates: start: 20060509, end: 20060509
  3. PLAVIX [Concomitant]
  4. ASPIRIN [Concomitant]
  5. LOPRESSOR [Concomitant]
  6. NITROGLYCERIN [Concomitant]
  7. MORPHINE [Concomitant]
  8. VERSED [Concomitant]

REACTIONS (7)
  - DYSPNOEA [None]
  - PROCEDURAL COMPLICATION [None]
  - SEDATION [None]
  - SINUS TACHYCARDIA [None]
  - STENT OCCLUSION [None]
  - THROMBOSIS IN DEVICE [None]
  - VENTRICULAR TACHYCARDIA [None]
